FAERS Safety Report 10190043 (Version 1)
Quarter: 2014Q2

REPORT INFORMATION
  Report Type: Spontaneous
  Country: US (occurrence: US)
  Receive Date: 20140522
  Receipt Date: 20140522
  Transmission Date: 20141212
  Serious: Yes (Hospitalization)
  Sender: FDA-Public Use
  Company Number: PHHY2014US062390

PATIENT
  Age: 49 Year
  Sex: Male

DRUGS (11)
  1. CLOZAPINE [Suspect]
     Dosage: 400 MG, UNK
  2. CLOZAPINE [Suspect]
     Dosage: 300 MG, DAILY
  3. NALOXONE [Suspect]
     Route: 040
  4. NALOXONE [Suspect]
     Dosage: UNK
     Route: 041
  5. FLUMAZENIL [Suspect]
     Indication: SEDATION
  6. ARIPIPRAZOLE [Concomitant]
     Dosage: 15 MG, UNK
  7. DIVALPROEX SODIUM [Concomitant]
     Dosage: 500 MG, UNK
  8. ESCITALOPRAM [Concomitant]
     Dosage: 10 MG, UNK
  9. VALPROIC ACID [Concomitant]
  10. VANCOMYCIN [Concomitant]
  11. CEFTRIAXONE [Concomitant]

REACTIONS (7)
  - Toxicity to various agents [Unknown]
  - Hypoxia [Unknown]
  - Salivary hypersecretion [Unknown]
  - Somnolence [Recovering/Resolving]
  - Sedation [Unknown]
  - Drug level increased [Unknown]
  - Drug ineffective [Unknown]
